FAERS Safety Report 19879446 (Version 2)
Quarter: 2024Q4

REPORT INFORMATION
  Report Type: Spontaneous
  Country: US (occurrence: US)
  Receive Date: 20210924
  Receipt Date: 20241226
  Transmission Date: 20250114
  Serious: No
  Sender: VERTEX
  Company Number: US-VERTEX PHARMACEUTICALS-2020-018685

PATIENT
  Sex: Male

DRUGS (4)
  1. TRIKAFTA [Suspect]
     Active Substance: ELEXACAFTOR\IVACAFTOR\TEZACAFTOR
     Indication: Cystic fibrosis
     Dosage: FREQUENCY UNKNOWN
     Route: 048
     Dates: start: 20191205
  2. URSODIOL [Concomitant]
     Active Substance: URSODIOL
  3. ZINC [Concomitant]
     Active Substance: ZINC
  4. PHYTONADIONE [Concomitant]
     Active Substance: PHYTONADIONE

REACTIONS (5)
  - Hordeolum [Recovering/Resolving]
  - Swelling of eyelid [Not Recovered/Not Resolved]
  - Oral herpes [Not Recovered/Not Resolved]
  - Eye infection viral [Not Recovered/Not Resolved]
  - Dry eye [Unknown]

NARRATIVE: CASE EVENT DATE: 20200101
